FAERS Safety Report 18122775 (Version 5)
Quarter: 2021Q3

REPORT INFORMATION
  Report Type: Report from Study
  Country: CA (occurrence: CA)
  Receive Date: 20200807
  Receipt Date: 20210721
  Transmission Date: 20211014
  Serious: Yes (Other)
  Sender: FDA-Public Use
  Company Number: CA-PFIZER INC-2020300887

PATIENT
  Age: 72 Year
  Sex: Female

DRUGS (11)
  1. TIOTROPIUM BROMIDE [Suspect]
     Active Substance: TIOTROPIUM BROMIDE
     Dosage: 2 DF, QD
  2. ACETYLSALICYLIC ACID [Suspect]
     Active Substance: ASPIRIN
     Dosage: UNK
  3. HYDROCHLOROTHIAZIDE. [Suspect]
     Active Substance: HYDROCHLOROTHIAZIDE
     Dosage: UNK
  4. PULMICORT TURBUHALER [Suspect]
     Active Substance: BUDESONIDE
     Dosage: 2 DF, QD
     Route: 055
  5. MEPOLIZUMAB [Suspect]
     Active Substance: MEPOLIZUMAB
     Indication: ASTHMA
     Dosage: 100 MG
     Route: 042
     Dates: start: 20180323
  6. TAMOXIFEN CITRATE. [Suspect]
     Active Substance: TAMOXIFEN CITRATE
     Dosage: UNK
     Route: 048
  7. ASA [Suspect]
     Active Substance: ASPIRIN
     Dosage: UNK
  8. RAMIPRIL. [Suspect]
     Active Substance: RAMIPRIL
     Dosage: UNK
     Route: 048
  9. CITALOPRAM [Suspect]
     Active Substance: CITALOPRAM HYDROBROMIDE
     Dosage: UNK
  10. BUDESONIDE/FORMOTEROL FUMARATE [Suspect]
     Active Substance: BUDESONIDE\FORMOTEROL FUMARATE
     Dosage: 1 DF, BID
     Route: 055
  11. SALBUTAMOL [Suspect]
     Active Substance: ALBUTEROL
     Dosage: UNK

REACTIONS (16)
  - Bronchomalacia [Unknown]
  - Oropharyngeal pain [Unknown]
  - Lung disorder [Unknown]
  - Asthma [Unknown]
  - Pyrexia [Unknown]
  - Secretion discharge [Unknown]
  - Bronchitis [Recovering/Resolving]
  - Pulmonary fibrosis [Unknown]
  - Inflammation [Recovering/Resolving]
  - Obstructive airways disorder [Unknown]
  - Chest discomfort [Unknown]
  - Pneumothorax [Unknown]
  - Viral infection [Unknown]
  - Fungal disease carrier [Unknown]
  - Upper respiratory tract infection [Unknown]
  - Cough [Recovering/Resolving]
